FAERS Safety Report 13674332 (Version 3)
Quarter: 2017Q2

REPORT INFORMATION
  Report Type: Spontaneous
  Country: US (occurrence: US)
  Receive Date: 20170621
  Receipt Date: 20170630
  Transmission Date: 20170830
  Serious: No
  Sender: FDA-Public Use
  Company Number: US-ASTRAZENECA-2017SE64242

PATIENT
  Age: 704 Month
  Sex: Female

DRUGS (1)
  1. BYDUREON [Suspect]
     Active Substance: EXENATIDE
     Indication: TYPE 2 DIABETES MELLITUS
     Route: 058
     Dates: start: 201702

REACTIONS (4)
  - Blood glucose decreased [Unknown]
  - Intentional device misuse [Unknown]
  - Drug dose omission [Unknown]
  - Product compounding quality issue [Unknown]

NARRATIVE: CASE EVENT DATE: 201706
